FAERS Safety Report 18538908 (Version 1)
Quarter: 2020Q4

REPORT INFORMATION
  Report Type: Spontaneous
  Country: US (occurrence: US)
  Receive Date: 20201124
  Receipt Date: 20201124
  Transmission Date: 20210114
  Serious: Yes (Hospitalization, Other)
  Sender: FDA-Public Use
  Company Number: US-APOTEX-2020AP022320

PATIENT
  Age: 16 Year
  Sex: Male

DRUGS (18)
  1. SERTRALINE [Suspect]
     Active Substance: SERTRALINE HYDROCHLORIDE
     Indication: MANIA
     Dosage: 100 MILLIGRAM, QD
     Route: 065
  2. HYDROXYZINE [Concomitant]
     Active Substance: HYDROXYZINE HYDROCHLORIDE
     Dosage: 50 MILLIGRAM, Q.H.S.
     Route: 065
  3. QUETIAPINE. [Concomitant]
     Active Substance: QUETIAPINE
     Indication: MANIA
     Dosage: 100 MILLIGRAM, Q.H.S.
     Route: 065
  4. OLANZAPINE. [Suspect]
     Active Substance: OLANZAPINE
     Indication: MANIA
     Dosage: UNK. OVERDOSE
     Route: 065
  5. BUPROPION. [Suspect]
     Active Substance: BUPROPION
     Indication: MANIA
     Dosage: 100 MILLIGRAM
     Route: 065
  6. CLOZAPINE. [Concomitant]
     Active Substance: CLOZAPINE
     Dosage: 100 MILLIGRAM, BID, TITRATION DOSE
     Route: 065
  7. LITHIUM OROTATE [Concomitant]
     Active Substance: LITHIUM OROTATE
     Indication: PRODUCT USED FOR UNKNOWN INDICATION
     Dosage: UNK
     Route: 065
  8. DIVALPROEX [Suspect]
     Active Substance: DIVALPROEX SODIUM
     Indication: MANIA
     Dosage: UNK, OVERDOSE
     Route: 065
  9. DIVALPROEX [Suspect]
     Active Substance: DIVALPROEX SODIUM
     Dosage: 500 MILLIGRAM, BID
     Route: 065
  10. ARIPIPRAZOLE. [Suspect]
     Active Substance: ARIPIPRAZOLE
     Indication: MANIA
     Dosage: 10 MILLIGRAM, Q.AM
     Route: 065
  11. HYDROXYZINE [Concomitant]
     Active Substance: HYDROXYZINE HYDROCHLORIDE
     Indication: ANXIETY
     Dosage: 25 MILLIGRAM, TID
     Route: 065
  12. TOPIRAMATE. [Concomitant]
     Active Substance: TOPIRAMATE
     Indication: MANIA
     Dosage: 50 MILLIGRAM, Q.H.S.
     Route: 065
  13. OLANZAPINE. [Suspect]
     Active Substance: OLANZAPINE
     Dosage: 10 MILLIGRAM, Q.H.S.
     Route: 065
  14. OLANZAPINE. [Suspect]
     Active Substance: OLANZAPINE
     Dosage: 15 MILLIGRAM, Q.H.S.
     Route: 065
  15. CLOZAPINE. [Concomitant]
     Active Substance: CLOZAPINE
     Indication: MANIA
     Dosage: UNK
     Route: 065
  16. HALOPERIDOL DECANOATE. [Concomitant]
     Active Substance: HALOPERIDOL DECANOATE
     Indication: MANIA
     Dosage: 50 MILLIGRAM
     Route: 030
  17. TRIHEXYPHENIDYL [TRIHEXYPHENIDYL HYDROCHLORIDE] [Concomitant]
     Indication: MANIA
     Dosage: UNK
     Route: 065
  18. BENZTROPINE [BENZATROPINE] [Concomitant]
     Active Substance: BENZTROPINE
     Indication: MANIA
     Dosage: 0.5 MILLIGRAM, Q.H.S.
     Route: 065

REACTIONS (3)
  - Dystonia [Recovering/Resolving]
  - Drug ineffective [Unknown]
  - Overdose [Unknown]
